FAERS Safety Report 4896661-3 (Version None)
Quarter: 2006Q1

REPORT INFORMATION
  Report Type: 
  Country: None (occurrence: None)
  Receive Date: 20060131
  Receipt Date: 20060127
  Transmission Date: 20060701
  Serious: Yes (Death)
  Sender: FDA-Public Use
  Company Number: PHBS2006HU01511

PATIENT
  Age: 53 Year
  Sex: Female
  Weight: 60 kg

DRUGS (1)
  1. LEPONEX [Suspect]
     Indication: PSYCHOTIC DISORDER
     Route: 048

REACTIONS (4)
  - AGRANULOCYTOSIS [None]
  - PYREXIA [None]
  - RESPIRATORY FAILURE [None]
  - SEPSIS [None]
